FAERS Safety Report 10903822 (Version 1)
Quarter: 2015Q1

REPORT INFORMATION
  Report Type: Spontaneous
  Country: US (occurrence: None)
  Receive Date: 20150306
  Receipt Date: 20150306
  Transmission Date: 20150721
  Serious: Yes (Life-Threatening, Hospitalization, Disabling, Other)
  Sender: FDA-Public Use
  Company Number: ADR-2015-00460

PATIENT
  Age: 44 Year
  Sex: Male

DRUGS (5)
  1. COCAINE [Suspect]
     Active Substance: COCAINE
  2. BACLOFEN INTRATHECAL [Suspect]
     Active Substance: BACLOFEN
     Indication: MUSCLE SPASTICITY
  3. DIAZEPAM. [Concomitant]
     Active Substance: DIAZEPAM
     Route: 042
  4. CYPROHEPTADINE. [Concomitant]
     Active Substance: CYPROHEPTADINE
  5. BACLOFEN. [Concomitant]
     Active Substance: BACLOFEN

REACTIONS (19)
  - Drug withdrawal syndrome [None]
  - No therapeutic response [None]
  - Renal failure [None]
  - Myocardial infarction [None]
  - Toxicologic test abnormal [None]
  - Muscle spasms [None]
  - Amputation [None]
  - Deep vein thrombosis [None]
  - Peripheral ischaemia [None]
  - Motor dysfunction [None]
  - Myoclonus [None]
  - Respiratory failure [None]
  - Confusional state [None]
  - Anxiety [None]
  - Shock [None]
  - Hypertensive emergency [None]
  - Hyperthermia [None]
  - Dialysis [None]
  - Leukocytosis [None]

NARRATIVE: CASE EVENT DATE: 20141028
